FAERS Safety Report 6969628-9 (Version None)
Quarter: 2010Q3

REPORT INFORMATION
  Report Type: 
  Country: None (occurrence: None)
  Receive Date: 20100907
  Receipt Date: 20100827
  Transmission Date: 20110219
  Serious: Yes (Other)
  Sender: FDA-Public Use
  Company Number: BE-BRISTOL-MYERS SQUIBB COMPANY-15272693

PATIENT

DRUGS (1)
  1. ORENCIA [Suspect]
     Dosage: DRUG INTERRUPTED AND RE-INITIATED.

REACTIONS (1)
  - PNEUMONITIS [None]
